FAERS Safety Report 7771150-7 (Version None)
Quarter: 2011Q3

REPORT INFORMATION
  Report Type: 
  Country: None (occurrence: None)
  Receive Date: 20110922
  Receipt Date: 20100830
  Transmission Date: 20111222
  Serious: No
  Sender: FDA-Public Use
  Company Number: US-ASTRAZENECA-2010SE40826

PATIENT
  Age: 54 Year
  Sex: Male
  Weight: 70.3 kg

DRUGS (6)
  1. SEROQUEL [Suspect]
     Indication: DEPRESSION
     Dosage: 100-600 MG
     Route: 048
     Dates: start: 20000101, end: 20070611
  2. RISPERDAL [Concomitant]
     Indication: DEPRESSION
     Dates: start: 20031218, end: 20060503
  3. ZYPREXA [Concomitant]
     Indication: ANXIETY
     Dates: start: 20031218, end: 20060530
  4. SEROQUEL [Suspect]
     Indication: ANXIETY
     Dosage: 100-600 MG
     Route: 048
     Dates: start: 20000101, end: 20070611
  5. RISPERDAL [Concomitant]
     Indication: ANXIETY
     Dates: start: 20031218, end: 20060503
  6. ZYPREXA [Concomitant]
     Indication: DEPRESSION
     Dates: start: 20031218, end: 20060530

REACTIONS (7)
  - DIABETIC COMPLICATION [None]
  - BACK INJURY [None]
  - TYPE 2 DIABETES MELLITUS [None]
  - HYPERLIPIDAEMIA [None]
  - NECK INJURY [None]
  - BLOOD CHOLESTEROL INCREASED [None]
  - BLOOD TRIGLYCERIDES INCREASED [None]
